FAERS Safety Report 6904143-X (Version None)
Quarter: 2010Q3

REPORT INFORMATION
  Report Type: 
  Country: None (occurrence: None)
  Receive Date: 20100804
  Receipt Date: 20090319
  Transmission Date: 20110219
  Serious: Yes (Other)
  Sender: FDA-Public Use
  Company Number: US-PFIZER INC-2009164793

PATIENT
  Sex: Female
  Weight: 81.633 kg

DRUGS (3)
  1. LYRICA [Suspect]
     Indication: FIBROMYALGIA
     Dosage: UNK
     Route: 048
  2. LYRICA [Suspect]
     Dosage: 50 MG, 1X/DAY
     Route: 048
     Dates: start: 20080101
  3. ATENOLOL [Concomitant]
     Indication: CARDIOMYOPATHY

REACTIONS (1)
  - WEIGHT INCREASED [None]
